FAERS Safety Report 23519995 (Version 5)
Quarter: 2025Q1

REPORT INFORMATION
  Report Type: Report from Study
  Country: US (occurrence: US)
  Receive Date: 20240214
  Receipt Date: 20250220
  Transmission Date: 20250408
  Serious: Yes (Other)
  Sender: EMD SERONO INC
  Company Number: US-Merck Healthcare KGaA-2024006502

PATIENT
  Sex: Female

DRUGS (1)
  1. MAVENCLAD [Suspect]
     Active Substance: CLADRIBINE
     Indication: Multiple sclerosis
     Dates: start: 20240112, end: 20240116

REACTIONS (16)
  - Dyspnoea [Unknown]
  - Cough [Unknown]
  - Pneumonia [Unknown]
  - Wheezing [Unknown]
  - Malaise [Not Recovered/Not Resolved]
  - Hepatic cirrhosis [Unknown]
  - Varices oesophageal [Unknown]
  - Epistaxis [Unknown]
  - Abdominal pain [Unknown]
  - Gait disturbance [Unknown]
  - Hypoacusis [Not Recovered/Not Resolved]
  - Migraine [Unknown]
  - Fatigue [Unknown]
  - Loss of personal independence in daily activities [Unknown]
  - Nausea [Unknown]
  - COVID-19 [Unknown]
